FAERS Safety Report 15833530 (Version 1)
Quarter: 2019Q1

REPORT INFORMATION
  Report Type: Spontaneous
  Country: BR (occurrence: BR)
  Receive Date: 20190116
  Receipt Date: 20190116
  Transmission Date: 20190417
  Serious: Yes (Other)
  Sender: FDA-Public Use
  Company Number: BR-CASPER PHARMA LLC-2019CAS000002

PATIENT
  Age: 23 Year
  Sex: Male

DRUGS (1)
  1. PENICILLIN G BENZATHINE [Suspect]
     Active Substance: PENICILLIN G BENZATHINE
     Indication: NEUROSYPHILIS
     Dosage: 24 MILLION INTERNATIONAL UNIT, QD
     Route: 042

REACTIONS (2)
  - Status epilepticus [Unknown]
  - Jarisch-Herxheimer reaction [Unknown]
